FAERS Safety Report 4342577-0 (Version None)
Quarter: 2004Q2

REPORT INFORMATION
  Report Type: 
  Country: None (occurrence: None)
  Receive Date: 20040413
  Receipt Date: 20040331
  Transmission Date: 20050107
  Serious: Yes (Hospitalization)
  Sender: FDA-Public Use
  Company Number: 2004206965NL

PATIENT
  Age: 75 Year
  Sex: Female

DRUGS (2)
  1. CAMPTOSAR [Suspect]
     Indication: SMALL CELL LUNG CANCER STAGE UNSPECIFIED
     Dosage: EVERY 3 WEEKS/CYCLIC, IV
     Route: 042
     Dates: start: 20040212, end: 20040212
  2. CISPLATIN [Suspect]
     Indication: SMALL CELL LUNG CANCER STAGE UNSPECIFIED
     Dosage: EVERY 3 WEEKS/CYCLIC, IV
     Route: 042
     Dates: start: 20040212, end: 20040212

REACTIONS (3)
  - CIRCULATORY COLLAPSE [None]
  - DEHYDRATION [None]
  - DIARRHOEA [None]
